FAERS Safety Report 24717528 (Version 1)
Quarter: 2024Q4

REPORT INFORMATION
  Report Type: Spontaneous
  Country: FR (occurrence: FR)
  Receive Date: 20241210
  Receipt Date: 20241210
  Transmission Date: 20250115
  Serious: Yes (Hospitalization)
  Sender: SANOFI AVENTIS
  Company Number: None

PATIENT
  Age: 37 Year
  Sex: Male

DRUGS (19)
  1. PREDNISONE [Suspect]
     Active Substance: PREDNISONE
     Indication: Meningitis tuberculous
     Dosage: 1 MG/KG, QD
     Route: 048
     Dates: start: 20240815
  2. RIFAMPIN [Suspect]
     Active Substance: RIFAMPIN
     Indication: Meningitis tuberculous
     Dosage: QUADRITHERAPY
     Dates: start: 20240815
  3. ETHAMBUTOL [Suspect]
     Active Substance: ETHAMBUTOL HYDROCHLORIDE
     Indication: Meningitis tuberculous
     Dosage: QUADRITHERAPY
     Dates: start: 20240815
  4. PYRAZINAMIDE [Suspect]
     Active Substance: PYRAZINAMIDE
     Indication: Meningitis tuberculous
     Dosage: QUADRITHERAPY
     Dates: start: 20240815
  5. ISONIAZID [Suspect]
     Active Substance: ISONIAZID
     Indication: Meningitis tuberculous
     Dosage: QUADRITHERAPY
     Dates: start: 20240815
  6. KEPPRA [Concomitant]
     Active Substance: LEVETIRACETAM
     Dosage: 1 TABLET AT 08:00 AND ONE TABLET AT 20:00.
  7. AZATHIOPRINE [Concomitant]
     Active Substance: AZATHIOPRINE
     Dosage: 1 TABLET MORNING AND EVENING
  8. COLCHICINE [Concomitant]
     Active Substance: COLCHICINE
     Dosage: 1 TABLET MORNING
  9. RIVAROXABAN [Concomitant]
     Active Substance: RIVAROXABAN
     Dosage: 1 TABLET MORNING
  10. LANSOPRAZOLE [Concomitant]
     Active Substance: LANSOPRAZOLE
     Dosage: 1 TABLET MORNING
  11. ACETAMINOPHEN [Concomitant]
     Active Substance: ACETAMINOPHEN
     Indication: Pain
     Dosage: 1 TABLET IF PAIN, DO NOT TAKE MORE THAN 3 TIMES A DAY.
  12. FENTANYL [Concomitant]
     Active Substance: FENTANYL
     Dosage: 1 EVERY THREE DAYS
  13. OXYCODONE [Concomitant]
     Active Substance: OXYCODONE
     Dosage: 1-1-1-1-1-1
  14. MIRTAZAPINE [Concomitant]
     Active Substance: MIRTAZAPINE
     Dosage: 2 TABLETS A DAY IN THE EVENING
  15. LYRICA [Concomitant]
     Active Substance: PREGABALIN
     Dosage: 1 IN THE MORNING, 1 AT LUNCHTIME AND 1 IN THE EVENING
  16. ASPIRIN [Concomitant]
     Active Substance: ASPIRIN
     Dosage: 1 A DAY IN THE MORNING
  17. POLYETHYLENE GLYCOLS [Concomitant]
     Active Substance: POLYETHYLENE GLYCOLS
     Indication: Constipation
     Dosage: 1 SACHET A DAY IF CONSTIPATION.
  18. ONDANSETRON [Concomitant]
     Active Substance: ONDANSETRON
     Dosage: 1-1
  19. METOCLOPRAMIDE [Concomitant]
     Active Substance: METOCLOPRAMIDE
     Dosage: 1-1-1

REACTIONS (1)
  - Eosinophilia [Recovered/Resolved]

NARRATIVE: CASE EVENT DATE: 20241017
